FAERS Safety Report 5824612-3 (Version None)
Quarter: 2008Q3

REPORT INFORMATION
  Report Type: 
  Country: None (occurrence: None)
  Receive Date: 20080728
  Receipt Date: 20080721
  Transmission Date: 20090109
  Serious: Yes (Hospitalization)
  Sender: FDA-Public Use
  Company Number: US-ELI_LILLY_AND_COMPANY-US200807004048

PATIENT
  Sex: Female

DRUGS (2)
  1. FORTEO [Suspect]
  2. MAGNESIUM SULFATE [Concomitant]
     Indication: SUPPLEMENTATION THERAPY

REACTIONS (2)
  - LUMBAR VERTEBRAL FRACTURE [None]
  - PAIN [None]
